FAERS Safety Report 16212333 (Version 2)
Quarter: 2019Q2

REPORT INFORMATION
  Report Type: Spontaneous
  Country: US (occurrence: US)
  Receive Date: 20190418
  Receipt Date: 20190510
  Transmission Date: 20190711
  Serious: No
  Sender: FDA-Public Use
  Company Number: US-PFIZER INC-2019160331

PATIENT
  Age: 57 Year
  Sex: Female
  Weight: 68.49 kg

DRUGS (7)
  1. CHANTIX [Suspect]
     Active Substance: VARENICLINE TARTRATE
     Dosage: 1 MG, 2X/DAY
     Route: 048
     Dates: start: 20190222
  2. LISINOPRIL. [Concomitant]
     Active Substance: LISINOPRIL
     Indication: ROUTINE HEALTH MAINTENANCE
     Dosage: 10 MG, 1X/DAY (ONCE A DAY BY MOUTH AT NIGHT)
     Route: 048
     Dates: start: 2017
  3. CHANTIX [Suspect]
     Active Substance: VARENICLINE TARTRATE
     Indication: SMOKING CESSATION THERAPY
     Dosage: 1 MG, 1X/DAY
     Dates: start: 20180330
  4. RANITIDINE. [Concomitant]
     Active Substance: RANITIDINE
     Indication: GASTROOESOPHAGEAL REFLUX DISEASE
     Dosage: 300 MG, 1X/DAY (ONCE A NIGHT)
     Dates: start: 2018
  5. CHANTIX [Suspect]
     Active Substance: VARENICLINE TARTRATE
     Dosage: 2 MG, DAILY (TWO 1MG A DAY)
  6. ATORVASTATIN [Concomitant]
     Active Substance: ATORVASTATIN
     Indication: GASTROOESOPHAGEAL REFLUX DISEASE
     Dosage: 80 MG, 1X/DAY (ONCE A DAY IN THE EVENING )
     Route: 048
     Dates: start: 2018
  7. PANTOPRAZOLE [Concomitant]
     Active Substance: PANTOPRAZOLE
     Indication: GASTROOESOPHAGEAL REFLUX DISEASE
     Dosage: 40 MG, 1X/DAY (ONCE A NIGHT)
     Route: 048

REACTIONS (5)
  - Intentional underdose [Unknown]
  - Laziness [Unknown]
  - Somnolence [Unknown]
  - Mood altered [Unknown]
  - Insomnia [Unknown]

NARRATIVE: CASE EVENT DATE: 2018
